FAERS Safety Report 6797343-3 (Version None)
Quarter: 2010Q2

REPORT INFORMATION
  Report Type: 
  Country: None (occurrence: None)
  Receive Date: 20100623
  Receipt Date: 20100608
  Transmission Date: 20101027
  Serious: Yes (Hospitalization)
  Sender: FDA-Public Use
  Company Number: 2010002428

PATIENT
  Age: 56 Year
  Sex: Female

DRUGS (5)
  1. ERLOTINIB HYDROCHLORIDE [Suspect]
     Indication: NON-SMALL CELL LUNG CANCER
     Dosage: (150 MG, QD) , ORAL
     Route: 048
     Dates: start: 20070216
  2. BEVACIZUMAB [Suspect]
     Indication: NON-SMALL CELL LUNG CANCER
     Dosage: (1050 MG, Q3W), INTRAVENOUS
     Route: 042
     Dates: start: 20061122
  3. PROMETHAZINE HYDROCHLORIDE (PROMETHAZINE HYDROCHLORIDE) [Concomitant]
  4. PLAQUENIL [Concomitant]
  5. DARVOCET [Concomitant]

REACTIONS (12)
  - APPENDIX DISORDER [None]
  - BLOOD CREATININE INCREASED [None]
  - BLOOD UREA INCREASED [None]
  - DECREASED APPETITE [None]
  - DIARRHOEA [None]
  - FLANK PAIN [None]
  - GASTROINTESTINAL INFLAMMATION [None]
  - ILEUS PARALYTIC [None]
  - LABORATORY TEST ABNORMAL [None]
  - PLATELET COUNT DECREASED [None]
  - RENAL FAILURE ACUTE [None]
  - WHITE BLOOD CELL COUNT INCREASED [None]
